FAERS Safety Report 8464687-9 (Version None)
Quarter: 2012Q2

REPORT INFORMATION
  Report Type: 
  Country: None (occurrence: None)
  Receive Date: 20120323
  Receipt Date: 20111115
  Transmission Date: 20120825
  Serious: Yes (Hospitalization)
  Sender: FDA-Public Use
  Company Number: 163-21880-11093514

PATIENT
  Age: 79 Year
  Sex: Female
  Weight: 63.9572 kg

DRUGS (9)
  1. REVLIMID [Suspect]
     Indication: MULTIPLE MYELOMA
     Dosage: 25 MG, 1 IN 1 D, PO
     Route: 048
     Dates: start: 20100201, end: 20110724
  2. ZOMETA [Concomitant]
  3. LANTUS [Concomitant]
  4. DECADRON [Concomitant]
  5. INSULIN DEPENDENT (INSULIN) [Concomitant]
  6. CLONIDINE [Concomitant]
  7. SODIUM BICARBONATE IN PLASTIC CONTAINER [Concomitant]
  8. ASPIRIN [Concomitant]
  9. AMLODIPINE [Concomitant]

REACTIONS (4)
  - RENAL FAILURE ACUTE [None]
  - VOMITING [None]
  - DISEASE PROGRESSION [None]
  - MALAISE [None]
